FAERS Safety Report 4967410-5 (Version None)
Quarter: 2006Q2

REPORT INFORMATION
  Report Type: 
  Country: None (occurrence: None)
  Receive Date: 20060410
  Receipt Date: 20060329
  Transmission Date: 20061013
  Serious: Yes (Disabling, Other)
  Sender: FDA-Public Use
  Company Number: AT-AMGEN-UK172982

PATIENT
  Sex: Female
  Weight: 72 kg

DRUGS (9)
  1. ARANESP [Suspect]
     Indication: RENAL FAILURE CHRONIC
     Route: 058
     Dates: start: 20050905, end: 20060301
  2. AZATHIOPRINE [Suspect]
     Route: 048
     Dates: start: 19790101, end: 20060327
  3. PREDNISOLONE [Concomitant]
     Route: 048
     Dates: start: 19790101
  4. MYCOPHENOLATE MOFETIL [Concomitant]
     Route: 048
     Dates: start: 20060327
  5. ASPIRIN [Concomitant]
     Route: 048
     Dates: start: 20020501
  6. CARVEDILOL [Concomitant]
     Route: 048
     Dates: start: 20020501
  7. AMLODIPINE [Concomitant]
     Route: 048
     Dates: start: 20020501
  8. RAMIPRIL [Concomitant]
     Route: 048
     Dates: start: 19910101
  9. ATORVASTATIN CALCIUM [Concomitant]
     Route: 048
     Dates: start: 19991201

REACTIONS (6)
  - ANAEMIA MACROCYTIC [None]
  - ANGINA PECTORIS [None]
  - CARDIOMEGALY [None]
  - DRUG SPECIFIC ANTIBODY PRESENT [None]
  - DRUG TOXICITY [None]
  - DYSPNOEA EXERTIONAL [None]
